FAERS Safety Report 10153389 (Version 1)
Quarter: 2014Q2

REPORT INFORMATION
  Report Type: Spontaneous
  Country: US (occurrence: US)
  Receive Date: 20140505
  Receipt Date: 20140505
  Transmission Date: 20141212
  Serious: No
  Sender: FDA-Public Use
  Company Number: US-ASTRAZENECA-2014SE02529

PATIENT
  Sex: Male

DRUGS (12)
  1. PRILOSEC [Suspect]
     Indication: DIZZINESS
     Dosage: TWO TIMES A DAY
     Route: 048
  2. PRILOSEC [Suspect]
     Indication: HEADACHE
     Dosage: TWO TIMES A DAY
     Route: 048
  3. PRILOSEC [Suspect]
     Indication: NAUSEA
     Dosage: TWO TIMES A DAY
     Route: 048
  4. PRILOSEC [Suspect]
     Indication: DYSPEPSIA
     Dosage: TWO TIMES A DAY
     Route: 048
  5. PRILOSEC [Suspect]
     Indication: WEIGHT DECREASED
     Dosage: TWO TIMES A DAY
     Route: 048
  6. PRILOSEC [Suspect]
     Indication: MALAISE
     Dosage: TWO TIMES A DAY
     Route: 048
  7. PRISTIQ [Suspect]
     Indication: NEUROPATHY PERIPHERAL
     Route: 048
     Dates: start: 2010
  8. PRISTIQ [Suspect]
     Indication: NEUROPATHY PERIPHERAL
     Route: 048
     Dates: start: 20131001, end: 20131010
  9. PRISTIQ [Suspect]
     Indication: NEUROPATHY PERIPHERAL
     Route: 048
     Dates: start: 20131011, end: 20131015
  10. PRISTIQ [Suspect]
     Indication: NEUROPATHY PERIPHERAL
     Route: 048
     Dates: start: 20131016, end: 20131026
  11. PRISTIQ [Suspect]
     Indication: NEUROPATHY PERIPHERAL
     Route: 048
     Dates: start: 20131026, end: 20131106
  12. NEURONTIN [Concomitant]

REACTIONS (9)
  - Weight decreased [Unknown]
  - Dizziness [Unknown]
  - Headache [Unknown]
  - Nausea [Unknown]
  - Dyspepsia [Unknown]
  - Malaise [Unknown]
  - Off label use [Unknown]
  - Off label use [Unknown]
  - Drug ineffective for unapproved indication [Unknown]
